FAERS Safety Report 25888414 (Version 2)
Quarter: 2025Q4

REPORT INFORMATION
  Report Type: Spontaneous
  Country: GB (occurrence: GB)
  Receive Date: 20251007
  Receipt Date: 20251023
  Transmission Date: 20260118
  Serious: Yes (Other)
  Sender: ROCHE
  Company Number: GB-ROCHE-10000401595

PATIENT
  Age: 59 Year
  Sex: Male
  Weight: 71.6 kg

DRUGS (1)
  1. HERCEPTIN [Suspect]
     Active Substance: TRASTUZUMAB
     Indication: Salivary gland cancer
     Route: 058
     Dates: start: 20230503, end: 20250603

REACTIONS (1)
  - Disease progression [Not Recovered/Not Resolved]

NARRATIVE: CASE EVENT DATE: 20230513
